FAERS Safety Report 5851564-2 (Version None)
Quarter: 2008Q3

REPORT INFORMATION
  Report Type: 
  Country: None (occurrence: None)
  Receive Date: 20080820
  Receipt Date: 20080812
  Transmission Date: 20090109
  Serious: Yes (Death)
  Sender: FDA-Public Use
  Company Number: US-ELI_LILLY_AND_COMPANY-US200808002612

PATIENT
  Age: 38 Year
  Sex: Female

DRUGS (2)
  1. CYMBALTA [Suspect]
     Dosage: 60 MG, UNK
     Dates: start: 20060101
  2. EFFEXOR [Concomitant]
     Dates: start: 20060101

REACTIONS (1)
  - DEATH [None]
